FAERS Safety Report 6621904-5 (Version None)
Quarter: 2010Q1

REPORT INFORMATION
  Report Type: 
  Country: None (occurrence: None)
  Receive Date: 20100309
  Receipt Date: 20100305
  Transmission Date: 20100710
  Serious: Yes (Disabling)
  Sender: FDA-Public Use
  Company Number: GB-MERCK-1002GBR00089

PATIENT
  Age: 72 Year
  Sex: Female

DRUGS (8)
  1. JANUVIA [Suspect]
     Route: 048
     Dates: start: 20100101, end: 20100106
  2. CALCIUM CARBONATE AND CHOLECALCIFEROL [Concomitant]
     Route: 065
  3. BISOPROLOL [Concomitant]
     Route: 065
  4. EZETIMIBE [Concomitant]
     Route: 065
  5. METFORMIN [Concomitant]
     Route: 065
  6. ACETAMINOPHEN [Concomitant]
     Route: 065
  7. PIOGLITAZONE HYDROCHLORIDE [Concomitant]
     Route: 065
  8. RAMIPRIL [Concomitant]
     Route: 065

REACTIONS (4)
  - ARTHRALGIA [None]
  - DEPRESSION [None]
  - OEDEMA PERIPHERAL [None]
  - PAIN IN EXTREMITY [None]
